FAERS Safety Report 5120982-2 (Version None)
Quarter: 2006Q4

REPORT INFORMATION
  Report Type: 
  Country: None (occurrence: None)
  Receive Date: 20061002
  Receipt Date: 20060922
  Transmission Date: 20070319
  Serious: Yes (Life-Threatening)
  Sender: FDA-Public Use
  Company Number: IT-2006-018403

PATIENT
  Age: 76 Year
  Sex: Male

DRUGS (1)
  1. ULTRAVIST 300 [Suspect]
     Indication: COMPUTERISED TOMOGRAM ABDOMEN
     Dosage: 300 UL, 1 DOSE, IV DRIP
     Route: 041
     Dates: start: 20060615, end: 20060615

REACTIONS (2)
  - DISSEMINATED INTRAVASCULAR COAGULATION [None]
  - HYPERSENSITIVITY [None]
